FAERS Safety Report 9183953 (Version 1)
Quarter: 2013Q1

REPORT INFORMATION
  Report Type: Spontaneous
  Country: US (occurrence: US)
  Receive Date: 20130322
  Receipt Date: 20130322
  Transmission Date: 20140127
  Serious: Yes (Other)
  Sender: FDA-Public Use
  Company Number: US-BRISTOL-MYERS SQUIBB COMPANY-16673774

PATIENT
  Age: 60 Year
  Sex: Female
  Weight: 70.29 kg

DRUGS (1)
  1. ERBITUX [Suspect]
     Indication: COLON ADENOMA
     Dosage: THEN 250MG/M2?427 IV OVER 60?684 IV OVER 120MINS
     Route: 042
     Dates: start: 20120524, end: 20120524

REACTIONS (7)
  - Respiratory arrest [Recovering/Resolving]
  - Loss of consciousness [Unknown]
  - Nausea [Unknown]
  - Restlessness [Unknown]
  - Feeling hot [Unknown]
  - Flushing [Unknown]
  - Blood pressure decreased [Unknown]
